FAERS Safety Report 19880356 (Version 1)
Quarter: 2021Q3

REPORT INFORMATION
  Report Type: Spontaneous
  Country: TN (occurrence: TN)
  Receive Date: 20210924
  Receipt Date: 20210924
  Transmission Date: 20211014
  Serious: Yes (Other)
  Sender: FDA-Public Use
  Company Number: TN-VIRTUS PHARMACEUTICALS, LLC-2021VTS00045

PATIENT
  Age: 50 Year
  Sex: Male

DRUGS (4)
  1. ALBUTEROL. [Suspect]
     Active Substance: ALBUTEROL
     Indication: ASTHMA
  2. TERBUTALINE [Suspect]
     Active Substance: TERBUTALINE
  3. ALBUTEROL. [Suspect]
     Active Substance: ALBUTEROL
     Dosage: 400 ?G BY METERED DOSE INHALER
  4. INHALED CORTICOSTEROIDS [Concomitant]

REACTIONS (3)
  - Dyspnoea [Recovered/Resolved]
  - Bronchospasm [Recovered/Resolved]
  - Asthma [Recovered/Resolved]
